FAERS Safety Report 7599847-2 (Version None)
Quarter: 2011Q3

REPORT INFORMATION
  Report Type: 
  Country: None (occurrence: None)
  Receive Date: 20110706
  Receipt Date: 20110706
  Transmission Date: 20111222
  Serious: Yes (Hospitalization)
  Sender: FDA-Public Use
  Company Number: None

PATIENT
  Sex: Female
  Weight: 112.8 kg

DRUGS (1)
  1. PACLITAXEL [Suspect]
     Dosage: 390 MG
     Dates: end: 20110629

REACTIONS (10)
  - DIARRHOEA [None]
  - CHILLS [None]
  - DEHYDRATION [None]
  - NAUSEA [None]
  - PURULENCE [None]
  - ABDOMINAL ABSCESS [None]
  - WOUND INFECTION STAPHYLOCOCCAL [None]
  - PYREXIA [None]
  - VOMITING [None]
  - CULTURE WOUND POSITIVE [None]
